FAERS Safety Report 22273109 (Version 1)
Quarter: 2023Q2

REPORT INFORMATION
  Report Type: Spontaneous
  Country: US (occurrence: None)
  Receive Date: 20230501
  Receipt Date: 20230501
  Transmission Date: 20230721
  Serious: Yes (Hospitalization)
  Sender: FDA-Public Use
  Company Number: None

PATIENT
  Sex: Female

DRUGS (1)
  1. H.P. ACTHAR [Suspect]
     Active Substance: CORTICOTROPIN
     Dosage: OTHER FREQUENCY : OTHER;?
     Route: 058

REACTIONS (4)
  - Pain in extremity [None]
  - Peripheral swelling [None]
  - Product dose omission issue [None]
  - Product use complaint [None]
